FAERS Safety Report 17594259 (Version 2)
Quarter: 2020Q2

REPORT INFORMATION
  Report Type: Report from Study
  Country: BR (occurrence: BR)
  Receive Date: 20200327
  Receipt Date: 20200407
  Transmission Date: 20200713
  Serious: Yes (Hospitalization, Other)
  Sender: FDA-Public Use
  Company Number: PHHY2018BR098617

PATIENT
  Age: 31 Year
  Sex: Female
  Weight: 70 kg

DRUGS (7)
  1. ILARIS [Suspect]
     Active Substance: CANAKINUMAB
     Indication: CRYOPYRIN ASSOCIATED PERIODIC SYNDROME
     Dosage: UNK
     Route: 058
  2. ILARIS [Suspect]
     Active Substance: CANAKINUMAB
     Indication: FAMILIAL MEDITERRANEAN FEVER
     Dosage: 150 MG, EVERY 28 DAYS
     Route: 058
     Dates: start: 20180901
  3. ILARIS [Suspect]
     Active Substance: CANAKINUMAB
     Indication: TUMOUR NECROSIS FACTOR RECEPTOR-ASSOCIATED PERIODIC SYNDROME
     Dosage: 150 MG, EVERY 28 DAYS
     Route: 058
  4. ILARIS [Suspect]
     Active Substance: CANAKINUMAB
     Dosage: UNK
     Route: 058
     Dates: start: 201811, end: 20190917
  5. ILARIS [Suspect]
     Active Substance: CANAKINUMAB
     Dosage: UNK
     Route: 058
     Dates: start: 20180929
  6. RITUXIMAB. [Suspect]
     Active Substance: RITUXIMAB
     Indication: INFLAMMATION
     Route: 065
  7. MABTHERA [Concomitant]
     Active Substance: RITUXIMAB
     Indication: PRODUCT USED FOR UNKNOWN INDICATION
     Dosage: UNK
     Route: 065

REACTIONS (19)
  - Headache [Not Recovered/Not Resolved]
  - Gait disturbance [Unknown]
  - Post procedural infection [Unknown]
  - Meningitis [Not Recovered/Not Resolved]
  - Dysstasia [Unknown]
  - Tremor [Recovered/Resolved]
  - Pain [Recovered/Resolved]
  - Paralysis [Not Recovered/Not Resolved]
  - Inflammation [Not Recovered/Not Resolved]
  - Facial paralysis [Recovered/Resolved]
  - Immunosuppression [Unknown]
  - Burning sensation [Not Recovered/Not Resolved]
  - Pain in extremity [Recovering/Resolving]
  - Cardiac complication associated with device [Unknown]
  - Cerebrospinal fluid leakage [Unknown]
  - Amyloid related imaging abnormalities [Unknown]
  - Inappropriate schedule of product administration [Unknown]
  - Drug ineffective [Unknown]
  - Pachymeningitis [Unknown]

NARRATIVE: CASE EVENT DATE: 20181004
